FAERS Safety Report 15756859 (Version 1)
Quarter: 2018Q4

REPORT INFORMATION
  Report Type: Spontaneous
  Country: GB (occurrence: GB)
  Receive Date: 20181224
  Receipt Date: 20181224
  Transmission Date: 20190205
  Serious: Yes (Hospitalization)
  Sender: FDA-Public Use
  Company Number: GB-IPSEN BIOPHARMACEUTICALS, INC.-2018-19555

PATIENT
  Sex: Female

DRUGS (11)
  1. PREDNISONE. [Concomitant]
     Active Substance: PREDNISONE
     Dosage: 60 MGX7 DAYS, THEN TAPER 50MGX 1 DAY, 40 MG 1 DAY, 30 MGX1 DAY, 20 MGX1 DAY, 10 MG X 1 DAY.
  2. DYSPORT [Suspect]
     Active Substance: ABOBOTULINUMTOXINA
     Indication: PRODUCT USED FOR UNKNOWN INDICATION
     Route: 030
     Dates: start: 201703, end: 201703
  3. DICLOFENAC EPOLAMINE [Concomitant]
     Active Substance: DICLOFENAC EPOLAMINE
     Dosage: 1 PATCH (1.3%)
  4. TRANSDERM SCOP [Concomitant]
     Active Substance: SCOPOLAMINE
     Dosage: PATCH 72 HR
  5. BOTULINUM TOXIN TYPE A (BOTOX) [Concomitant]
     Dosage: INJECTED AS DIRECTED (100 UNITS RECON SOLN)
  6. LIDOCAINE. [Concomitant]
     Active Substance: LIDOCAINE
     Dosage: APPLY A LEMON SIZED AMOUNT TO RIGHT KNEE.
  7. TOPIRAMATE. [Concomitant]
     Active Substance: TOPIRAMATE
  8. BIOTIN [Concomitant]
     Active Substance: BIOTIN
  9. DIAZEPAM. [Concomitant]
     Active Substance: DIAZEPAM
     Indication: ANXIETY
  10. DICLOFENAC SODIUM. [Concomitant]
     Active Substance: DICLOFENAC SODIUM
     Indication: PAIN
     Dosage: PLACE ON THE SKIN. APPLY TO RIGHT KNEE CAP UP TO THREE TIMES DAILY AS NEEDED.
  11. FLUTICASONE PROPIONATE. [Concomitant]
     Active Substance: FLUTICASONE PROPIONATE
     Dosage: 50 MICROGRAM/ACT, 1 SPRAY INTO EACH NOSTRIL.

REACTIONS (4)
  - Headache [Unknown]
  - Nausea [Unknown]
  - Dyspnoea [Not Recovered/Not Resolved]
  - Chest pain [Recovering/Resolving]

NARRATIVE: CASE EVENT DATE: 2018
